FAERS Safety Report 7715110-0 (Version None)
Quarter: 2011Q3

REPORT INFORMATION
  Report Type: 
  Country: None (occurrence: None)
  Receive Date: 20110829
  Receipt Date: 20110819
  Transmission Date: 20111222
  Serious: Yes (Hospitalization)
  Sender: FDA-Public Use
  Company Number: FR-SANOFI-AVENTIS-2011SA053088

PATIENT
  Age: 51 Year
  Sex: Male

DRUGS (6)
  1. OXYCONTIN [Concomitant]
  2. TARGOCID [Suspect]
     Route: 042
     Dates: start: 20110603, end: 20110610
  3. CETIRIZINE HCL [Concomitant]
  4. LOVENOX [Suspect]
     Route: 058
     Dates: start: 20110518, end: 20110610
  5. ACETAMINOPHEN [Concomitant]
  6. CELIPROLOL [Concomitant]

REACTIONS (3)
  - LYMPHOPENIA [None]
  - PYREXIA [None]
  - THROMBOCYTOPENIA [None]
